FAERS Safety Report 4502703-7 (Version None)
Quarter: 2004Q4

REPORT INFORMATION
  Report Type: 
  Country: None (occurrence: None)
  Receive Date: 20041109
  Receipt Date: 20041025
  Transmission Date: 20050328
  Serious: Yes (Hospitalization)
  Sender: FDA-Public Use
  Company Number: 105292ISR

PATIENT
  Age: 46 Year
  Sex: Female

DRUGS (5)
  1. FLUOROURACIL [Suspect]
     Indication: BREAST CANCER
     Dates: start: 20040902
  2. EPIRUBICIN [Suspect]
     Indication: BREAST CANCER
     Dates: start: 20040902
  3. CYCLOPHOSPHAMIDE [Suspect]
     Indication: BREAST CANCER
     Dates: start: 20040902
  4. FILGRASTIM [Suspect]
     Indication: GRANULOCYTES ABNORMAL
     Dates: start: 20040910
  5. FILGRASTIM [Suspect]
     Indication: GRANULOCYTES ABNORMAL
     Dates: start: 20040910

REACTIONS (3)
  - BONE MARROW DEPRESSION [None]
  - PANCYTOPENIA [None]
  - PYREXIA [None]
